FAERS Safety Report 13321476 (Version 1)
Quarter: 2017Q1

REPORT INFORMATION
  Report Type: Spontaneous
  Country: US (occurrence: US)
  Receive Date: 20170310
  Receipt Date: 20170310
  Transmission Date: 20170428
  Serious: Yes (Disabling)
  Sender: FDA-Public Use
  Company Number: None

PATIENT
  Age: 57 Year
  Sex: Male
  Weight: 94.5 kg

DRUGS (5)
  1. CALCIUM AND MAGNESIUM SUPPLEMENTS [Concomitant]
  2. LEVOFLOXACIN. [Suspect]
     Active Substance: LEVOFLOXACIN
     Indication: DRUG THERAPY
     Dosage: ?          OTHER ROUTE:BY MOUTH?
     Route: 048
  3. ESCITALOPRAM [Concomitant]
     Active Substance: ESCITALOPRAM OXALATE
  4. BENADRYL [Concomitant]
     Active Substance: DIPHENHYDRAMINE HYDROCHLORIDE
  5. BUPROPION. [Concomitant]
     Active Substance: BUPROPION

REACTIONS (3)
  - Arthralgia [None]
  - Tendon pain [None]
  - Muscle spasms [None]

NARRATIVE: CASE EVENT DATE: 20160129
